FAERS Safety Report 6958154-9 (Version None)
Quarter: 2010Q3

REPORT INFORMATION
  Report Type: 
  Country: None (occurrence: None)
  Receive Date: 20100831
  Receipt Date: 20100819
  Transmission Date: 20110219
  Serious: Yes (Hospitalization, Other)
  Sender: FDA-Public Use
  Company Number: US-PFIZER INC-2010105896

PATIENT
  Sex: Male
  Weight: 53.07 kg

DRUGS (2)
  1. BENZYLPENICILLIN POTASSIUM [Suspect]
     Indication: PHARYNGITIS
     Dosage: UNK
     Route: 030
     Dates: start: 20100304
  2. LORAZEPAM [Concomitant]
     Dosage: UNK

REACTIONS (3)
  - CONVULSION [None]
  - HYPERREFLEXIA [None]
  - PAIN IN EXTREMITY [None]
